FAERS Safety Report 8305709-5 (Version None)
Quarter: 2012Q2

REPORT INFORMATION
  Report Type: 
  Country: None (occurrence: None)
  Receive Date: 20120423
  Receipt Date: 20120416
  Transmission Date: 20120825
  Serious: Yes (Other)
  Sender: FDA-Public Use
  Company Number: US-US-EMD SERONO, INC.-7126718

PATIENT
  Sex: Female

DRUGS (6)
  1. ARTANE [Concomitant]
     Indication: PARKINSON'S DISEASE
  2. WELLBUTRIN [Concomitant]
     Indication: DEPRESSION
  3. STALEVO 100 [Concomitant]
     Indication: PARKINSON'S DISEASE
  4. PAXIL [Concomitant]
     Indication: DEPRESSION
  5. XANAX [Concomitant]
     Indication: PRODUCT USED FOR UNKNOWN INDICATION
  6. REBIF [Suspect]
     Indication: MULTIPLE SCLEROSIS
     Route: 058
     Dates: start: 20030526

REACTIONS (7)
  - BREAST CANCER STAGE I [None]
  - MUSCLE TWITCHING [None]
  - NAUSEA [None]
  - CYSTITIS [None]
  - ANKLE OPERATION [None]
  - RED BLOOD CELL COUNT DECREASED [None]
  - CONSTIPATION [None]
